FAERS Safety Report 9528071 (Version 1)
Quarter: 2013Q1

REPORT INFORMATION
  Report Type: Spontaneous
  Country: US (occurrence: None)
  Receive Date: 20130329
  Receipt Date: 20130329
  Transmission Date: 20140127
  Serious: Yes (Other)
  Sender: FDA-Public Use
  Company Number: 1000042448

PATIENT
  Age: 62 Year
  Sex: Female

DRUGS (5)
  1. LINZESS [Suspect]
     Indication: CONSTIPATION
     Dosage: 145MCG (145 MCG, 1 IN 1 D),ORAL
     Route: 048
     Dates: start: 20121214, end: 20130127
  2. METOPROLOL (METOPROLOL) (METOPROLOL) [Concomitant]
  3. LIDOCAINE (LIDOCAINE) (POULTICE OR PATCH) (LIDOCAINE) [Concomitant]
  4. COLACE (DOCUSATE SODIUM) (DOCUSATE SODIUM) [Concomitant]
  5. MAGNESIUM (MAGNESIUM) (UNKNOWN) [Concomitant]

REACTIONS (2)
  - Diarrhoea [None]
  - Nausea [None]
